FAERS Safety Report 23261156 (Version 1)
Quarter: 2023Q4

REPORT INFORMATION
  Report Type: Spontaneous
  Country: US (occurrence: US)
  Receive Date: 20231205
  Receipt Date: 20231205
  Transmission Date: 20240110
  Serious: Yes (Hospitalization)
  Sender: FDA-Public Use
  Company Number: US-ALKEM LABORATORIES LIMITED-US-ALKEM-2023-14044

PATIENT
  Age: 40 Year
  Sex: Female

DRUGS (5)
  1. AMLODIPINE BESYLATE [Suspect]
     Active Substance: AMLODIPINE BESYLATE
     Indication: Hypertension
     Dosage: 10 MILLIGRAM, QD
     Route: 048
     Dates: start: 2015, end: 20231116
  2. Methotymazon [Concomitant]
     Indication: Product used for unknown indication
     Dosage: UNK
     Route: 065
  3. CETIRIZINE [Concomitant]
     Active Substance: CETIRIZINE HYDROCHLORIDE
     Indication: Product used for unknown indication
     Dosage: UNK
     Route: 065
  4. Rebarazxoel [Concomitant]
     Indication: Product used for unknown indication
     Dosage: UNK
     Route: 065
  5. NASAL [Concomitant]
     Active Substance: FLUTICASONE PROPIONATE\OXYMETAZOLINE HYDROCHLORIDE\PHENYLEPHRINE HYDROCHLORIDE
     Indication: Product used for unknown indication
     Dosage: UNK

REACTIONS (6)
  - Gingivitis [Not Recovered/Not Resolved]
  - Hypersomnia [Not Recovered/Not Resolved]
  - Hypoaesthesia [Not Recovered/Not Resolved]
  - Pyrexia [Not Recovered/Not Resolved]
  - Mood swings [Not Recovered/Not Resolved]
  - Dry mouth [Not Recovered/Not Resolved]

NARRATIVE: CASE EVENT DATE: 20230101
